FAERS Safety Report 20046124 (Version 1)
Quarter: 2021Q4

REPORT INFORMATION
  Report Type: Spontaneous
  Country: US (occurrence: US)
  Receive Date: 20211108
  Receipt Date: 20211108
  Transmission Date: 20220303
  Serious: Yes (Hospitalization)
  Sender: FDA-Public Use
  Company Number: US-BIOVITRUM-2021US9794

PATIENT
  Age: 1 Year
  Sex: Female
  Weight: 5 kg

DRUGS (7)
  1. SYNAGIS [Suspect]
     Active Substance: PALIVIZUMAB
     Indication: Bronchopulmonary dysplasia
     Dosage: SYNAGIS 100MG/1ML VL LIQUID
     Route: 030
  2. FAMOTIDINE [Concomitant]
     Active Substance: FAMOTIDINE
     Dosage: 40MG/5ML
  3. SYNAGIS [Suspect]
     Active Substance: PALIVIZUMAB
     Indication: Hydrocephalus
  4. SYNAGIS [Suspect]
     Active Substance: PALIVIZUMAB
     Indication: Asthma
  5. SYNAGIS [Suspect]
     Active Substance: PALIVIZUMAB
     Indication: Low birth weight baby
  6. SYNAGIS [Suspect]
     Active Substance: PALIVIZUMAB
     Indication: Intraventricular haemorrhage neonatal
  7. SYNAGIS [Suspect]
     Active Substance: PALIVIZUMAB
     Indication: Intraventricular haemorrhage neonatal

REACTIONS (1)
  - Respiratory syncytial virus infection [Not Recovered/Not Resolved]

NARRATIVE: CASE EVENT DATE: 20211028
